FAERS Safety Report 18273376 (Version 1)
Quarter: 2020Q3

REPORT INFORMATION
  Report Type: Spontaneous
  Country: US (occurrence: US)
  Receive Date: 20200916
  Receipt Date: 20200916
  Transmission Date: 20201103
  Serious: No
  Sender: FDA-Public Use
  Company Number: US-THERAPEUTICSMD-2020TMD03709

PATIENT
  Age: 43 Year
  Sex: Female
  Weight: 52.61 kg

DRUGS (4)
  1. VITAMIN C [Concomitant]
     Active Substance: ASCORBIC ACID
  2. VITAMIN D [Concomitant]
     Active Substance: VITAMIN D NOS
  3. IMVEXXY [Suspect]
     Active Substance: ESTRADIOL
     Indication: DYSPAREUNIA
     Dosage: 10 ?G, 1X/DAY IN THE MORNING
     Route: 067
     Dates: start: 20200826
  4. ZINC. [Concomitant]
     Active Substance: ZINC

REACTIONS (1)
  - Administration site discomfort [Recovered/Resolved]

NARRATIVE: CASE EVENT DATE: 20200826
